FAERS Safety Report 21372033 (Version 1)
Quarter: 2022Q3

REPORT INFORMATION
  Report Type: Spontaneous
  Country: US (occurrence: None)
  Receive Date: 20220923
  Receipt Date: 20220923
  Transmission Date: 20221027
  Serious: No
  Sender: FDA-Public Use
  Company Number: 2022A317839

PATIENT
  Sex: Male

DRUGS (2)
  1. FARXIGA [Suspect]
     Active Substance: DAPAGLIFLOZIN PROPANEDIOL
     Indication: Myocardial infarction
     Dosage: UNKNOWN
     Route: 048
     Dates: start: 202204
  2. FARXIGA [Suspect]
     Active Substance: DAPAGLIFLOZIN PROPANEDIOL
     Indication: Myocardial infarction
     Dosage: UNKNOWN
     Route: 048

REACTIONS (3)
  - Dry mouth [Unknown]
  - Pollakiuria [Unknown]
  - Micturition disorder [Unknown]
